FAERS Safety Report 17590636 (Version 1)
Quarter: 2020Q1

REPORT INFORMATION
  Report Type: Spontaneous
  Country: CA (occurrence: CA)
  Receive Date: 20200327
  Receipt Date: 20200327
  Transmission Date: 20200409
  Serious: Yes (Death, Other)
  Sender: FDA-Public Use
  Company Number: NVSC2020CA084317

PATIENT
  Age: 66 Year
  Sex: Female
  Weight: 56 kg

DRUGS (17)
  1. PREDNISONE. [Concomitant]
     Active Substance: PREDNISONE
     Indication: GOUT
     Dosage: 50 MG
     Route: 065
  2. SLOW K [Concomitant]
     Active Substance: POTASSIUM CHLORIDE
     Indication: HYPOKALAEMIA
     Dosage: 20 MG
     Route: 065
  3. DEXAMETHASONE. [Concomitant]
     Active Substance: DEXAMETHASONE
     Indication: FATIGUE
     Dosage: 2 MG
     Route: 065
  4. PREDNISONE. [Concomitant]
     Active Substance: PREDNISONE
     Indication: ADRENAL INSUFFICIENCY
     Dosage: 20 MG
     Route: 065
  5. AROMASIN [Suspect]
     Active Substance: EXEMESTANE
     Indication: PRODUCT USED FOR UNKNOWN INDICATION
     Dosage: 25 MG (91 DAYS)
     Route: 065
  6. CYANOCOBALAMIN. [Concomitant]
     Active Substance: CYANOCOBALAMIN
     Indication: PRODUCT USED FOR UNKNOWN INDICATION
     Dosage: UNK
     Route: 065
  7. POVIDONE-IODINE. [Concomitant]
     Active Substance: POVIDONE-IODINE
     Indication: PRODUCT USED FOR UNKNOWN INDICATION
     Dosage: 100 IU
     Route: 065
  8. NIFEDIPINE XL [Concomitant]
     Active Substance: NIFEDIPINE
     Indication: HYPERTENSION
     Dosage: 30 MG
     Route: 065
  9. DEXAMETHASONE. [Concomitant]
     Active Substance: DEXAMETHASONE
     Indication: PROPHYLAXIS
     Dosage: 5 MG
     Route: 065
  10. ELAVIL [Concomitant]
     Active Substance: AMITRIPTYLINE HYDROCHLORIDE
     Indication: FACIAL PAIN
  11. RABEPRAZOLE [Concomitant]
     Active Substance: RABEPRAZOLE
     Indication: GASTROOESOPHAGEAL REFLUX DISEASE
     Dosage: 20 MG
     Route: 065
  12. ERGOCALCIFEROL. [Concomitant]
     Active Substance: ERGOCALCIFEROL
     Dosage: 600 MG
     Route: 065
  13. WARFARIN [Concomitant]
     Active Substance: WARFARIN
     Indication: CARDIAC DISORDER
     Dosage: 2.5 MG
     Route: 065
  14. ELAVIL [Concomitant]
     Active Substance: AMITRIPTYLINE HYDROCHLORIDE
     Indication: MIGRAINE
     Dosage: 25 MG
     Route: 065
  15. ERGOCALCIFEROL. [Concomitant]
     Active Substance: ERGOCALCIFEROL
     Indication: PRODUCT USED FOR UNKNOWN INDICATION
     Dosage: 800 MG
     Route: 065
  16. AFINITOR [Suspect]
     Active Substance: EVEROLIMUS
     Indication: BREAST CANCER
     Dosage: 10 MG, QD (91 DAYS)
     Route: 048
  17. ERGOCALCIFEROL. [Concomitant]
     Active Substance: ERGOCALCIFEROL
     Dosage: 1000 IU
     Route: 065

REACTIONS (25)
  - Bronchospasm [Fatal]
  - Nail disorder [Fatal]
  - Tachycardia [Fatal]
  - Hyperglycaemia [Fatal]
  - Pelvic pain [Fatal]
  - Sepsis [Fatal]
  - Stomatitis [Fatal]
  - Cough [Fatal]
  - Dry skin [Fatal]
  - Headache [Fatal]
  - Restlessness [Fatal]
  - Oxygen saturation decreased [Fatal]
  - Renal impairment [Fatal]
  - Thrombocytopenia [Fatal]
  - Dyspnoea [Fatal]
  - Epistaxis [Fatal]
  - Rash [Fatal]
  - Type 2 diabetes mellitus [Fatal]
  - Urosepsis [Fatal]
  - Hypotension [Fatal]
  - Septic shock [Fatal]
  - Arthralgia [Fatal]
  - Cardiac failure [Fatal]
  - Face oedema [Fatal]
  - Sinusitis [Fatal]
